FAERS Safety Report 19445111 (Version 2)
Quarter: 2025Q1

REPORT INFORMATION
  Report Type: Spontaneous
  Country: CA (occurrence: CA)
  Receive Date: 20210622
  Receipt Date: 20250307
  Transmission Date: 20250409
  Serious: Yes (Other)
  Sender: CELLTRION
  Company Number: CA-CELLTRION INC.-2021CA008150

PATIENT

DRUGS (7)
  1. RITUXIMAB [Suspect]
     Active Substance: RITUXIMAB
     Indication: Rheumatoid arthritis
     Route: 042
  2. RITUXIMAB [Suspect]
     Active Substance: RITUXIMAB
     Route: 042
  3. RITUXIMAB [Suspect]
     Active Substance: RITUXIMAB
     Route: 042
  4. RITUXIMAB [Suspect]
     Active Substance: RITUXIMAB
     Route: 041
  5. CIMZIA [Concomitant]
     Active Substance: CERTOLIZUMAB PEGOL
     Route: 058
  6. NAPROXEN SODIUM [Concomitant]
     Active Substance: NAPROXEN SODIUM
  7. PREDNISONE [Concomitant]
     Active Substance: PREDNISONE

REACTIONS (8)
  - Bone erosion [Not Recovered/Not Resolved]
  - Wound drainage [Not Recovered/Not Resolved]
  - Arthropathy [Unknown]
  - Infection [Unknown]
  - Arthralgia [Not Recovered/Not Resolved]
  - Arthritis infective [Not Recovered/Not Resolved]
  - Oedema peripheral [Not Recovered/Not Resolved]
  - Intentional product use issue [Unknown]
